FAERS Safety Report 5881247-4 (Version None)
Quarter: 2008Q3

REPORT INFORMATION
  Report Type: 
  Country: None (occurrence: None)
  Receive Date: 20080911
  Receipt Date: 20080904
  Transmission Date: 20090109
  Serious: Yes (Hospitalization, Other)
  Sender: FDA-Public Use
  Company Number: TPA2008A01326

PATIENT
  Age: 87 Year
  Sex: Male
  Weight: 60.3284 kg

DRUGS (6)
  1. PIOGLITAZONE HCL [Suspect]
     Indication: CARDIOVASCULAR EVENT PROPHYLAXIS
     Dosage: 1 IN 1 D, PER ORAL
     Route: 048
     Dates: start: 20060403, end: 20080729
  2. LIPITOR [Concomitant]
  3. ALTACE [Concomitant]
  4. LEXAPRO [Concomitant]
  5. AGGRENOX (ACETYLASALICYLIC ACID, DIPYRIDAMOLE) [Concomitant]
  6. FESO4 ( FERROUS SULFATE) [Concomitant]

REACTIONS (7)
  - ANAEMIA POSTOPERATIVE [None]
  - BALANCE DISORDER [None]
  - FALL [None]
  - HIP FRACTURE [None]
  - MOBILITY DECREASED [None]
  - PAIN [None]
  - PAIN IN EXTREMITY [None]
